FAERS Safety Report 21673463 (Version 1)
Quarter: 2022Q4

REPORT INFORMATION
  Report Type: Spontaneous
  Country: US (occurrence: US)
  Receive Date: 20221202
  Receipt Date: 20221202
  Transmission Date: 20230113
  Serious: Yes (Hospitalization)
  Sender: FDA-Public Use
  Company Number: US-LUNDBECK-DKLU3055499

PATIENT
  Age: 73 Year
  Sex: Male

DRUGS (4)
  1. NORTHERA [Suspect]
     Active Substance: DROXIDOPA
     Indication: Orthostatic hypotension
     Route: 048
     Dates: start: 202008
  2. NORTHERA [Suspect]
     Active Substance: DROXIDOPA
     Indication: Dizziness
     Route: 048
     Dates: start: 202008
  3. NORTHERA [Suspect]
     Active Substance: DROXIDOPA
     Indication: Syncope
     Route: 048
     Dates: start: 202008
  4. NORTHERA [Suspect]
     Active Substance: DROXIDOPA
     Indication: Hypotension

REACTIONS (1)
  - Surgery [Not Recovered/Not Resolved]
